FAERS Safety Report 14834798 (Version 1)
Quarter: 2018Q2

REPORT INFORMATION
  Report Type: Spontaneous
  Country: US (occurrence: US)
  Receive Date: 20180501
  Receipt Date: 20180501
  Transmission Date: 20180711
  Serious: No
  Sender: FDA-Public Use
  Company Number: US-LUNDBECK-DKLU2047939

PATIENT
  Age: 48 Year
  Sex: Female

DRUGS (5)
  1. NORTHERA [Suspect]
     Active Substance: DROXIDOPA
     Indication: AUTONOMIC NEUROPATHY
     Dosage: TITRATION COMPLETE
     Route: 048
     Dates: start: 20180206
  2. NORTHERA [Suspect]
     Active Substance: DROXIDOPA
     Indication: SYNCOPE
  3. NORTHERA [Suspect]
     Active Substance: DROXIDOPA
     Indication: DIZZINESS
  4. NORTHERA [Suspect]
     Active Substance: DROXIDOPA
     Indication: ARRHYTHMIA
  5. NORTHERA [Suspect]
     Active Substance: DROXIDOPA
     Indication: ORTHOSTATIC HYPOTENSION

REACTIONS (2)
  - Blood pressure decreased [Unknown]
  - Drug dose omission [Unknown]

NARRATIVE: CASE EVENT DATE: 20180425
